FAERS Safety Report 5738309-1 (Version None)
Quarter: 2008Q2

REPORT INFORMATION
  Report Type: 
  Country: None (occurrence: None)
  Receive Date: 20080513
  Receipt Date: 20080505
  Transmission Date: 20081010
  Serious: Yes (Death)
  Sender: FDA-Public Use
  Company Number: 163-21880-08050027

PATIENT
  Age: 69 Year
  Sex: Male
  Weight: 126.2 kg

DRUGS (5)
  1. REVLIMID [Suspect]
     Indication: MULTIPLE MYELOMA
     Dosage: 10 MG, DAILY FOR 3 MONTHS, ORAL, 10 MG, DAILY FOR 3 MONTHS, ORAL
     Route: 048
     Dates: start: 20080331, end: 20080422
  2. REVLIMID [Suspect]
     Indication: MULTIPLE MYELOMA
     Dosage: 10 MG, DAILY FOR 3 MONTHS, ORAL, 10 MG, DAILY FOR 3 MONTHS, ORAL
     Route: 048
     Dates: start: 20071025
  3. G-CSF (GRANULOCYTE COLONY STIMULATING FACTOR) [Concomitant]
  4. MELPHALAN (MELPHALAN) [Concomitant]
  5. DECADRON [Concomitant]

REACTIONS (12)
  - ABNORMAL BEHAVIOUR [None]
  - BLOOD PH DECREASED [None]
  - BRADYCARDIA [None]
  - DECREASED APPETITE [None]
  - MULTI-ORGAN FAILURE [None]
  - PCO2 DECREASED [None]
  - PO2 INCREASED [None]
  - RENAL FAILURE [None]
  - RESPIRATORY FAILURE [None]
  - SEPSIS [None]
  - TRANSAMINASES INCREASED [None]
  - UNRESPONSIVE TO STIMULI [None]
